FAERS Safety Report 6435043-X (Version None)
Quarter: 2009Q4

REPORT INFORMATION
  Report Type: 
  Country: None (occurrence: None)
  Receive Date: 20091110
  Receipt Date: 20091028
  Transmission Date: 20100525
  Serious: Yes (Other)
  Sender: FDA-Public Use
  Company Number: US-JNJFOC-20090301514

PATIENT
  Sex: Female
  Weight: 66.23 kg

DRUGS (9)
  1. DURAGESIC-100 [Suspect]
     Route: 062
  2. DURAGESIC-100 [Suspect]
     Route: 062
  3. DURAGESIC-100 [Suspect]
     Indication: CYSTITIS INTERSTITIAL
     Route: 062
  4. ELMIRON [Concomitant]
     Indication: BLADDER DISORDER
     Route: 048
     Dates: start: 20060101
  5. CYMBALTA [Concomitant]
     Indication: DEPRESSION
     Route: 048
  6. ENABLEX [Concomitant]
     Indication: BLADDER DISORDER
     Route: 048
  7. PERCOCET [Concomitant]
     Indication: PAIN
     Dosage: 1 EVERY 6 HOURS AS NEEDED
     Route: 048
  8. CIPRO [Concomitant]
     Indication: BLADDER DISORDER
     Route: 048
  9. TAPENTADOL HYDROCHLORIDE [Concomitant]
     Indication: BREAKTHROUGH PAIN
     Route: 048
     Dates: start: 20090101

REACTIONS (11)
  - APPLICATION SITE RASH [None]
  - ARTHROPATHY [None]
  - DEVICE LEAKAGE [None]
  - DRUG ADMINISTERED AT INAPPROPRIATE SITE [None]
  - DRUG ADMINISTRATION ERROR [None]
  - INAPPROPRIATE SCHEDULE OF DRUG ADMINISTRATION [None]
  - OFF LABEL USE [None]
  - PRODUCT QUALITY ISSUE [None]
  - SOMNOLENCE [None]
  - WEIGHT INCREASED [None]
  - WRONG TECHNIQUE IN DRUG USAGE PROCESS [None]
